FAERS Safety Report 5484860-1 (Version None)
Quarter: 2007Q4

REPORT INFORMATION
  Report Type: 
  Country: None (occurrence: None)
  Receive Date: 20071010
  Receipt Date: 20070924
  Transmission Date: 20080405
  Serious: Yes (Congenital Anomaly)
  Sender: FDA-Public Use
  Company Number: B0489474A

PATIENT
  Sex: 0

DRUGS (1)
  1. FLUTICASONE PROPIONATE+SALMETEROL XINAFOATE HFA-CFC FREE INH [Suspect]
     Dosage: TRANSPLACENTARY
     Route: 064

REACTIONS (5)
  - CAESAREAN SECTION [None]
  - CONGENITAL ANOMALY [None]
  - DRUG EXPOSURE DURING PREGNANCY [None]
  - HEAD DEFORMITY [None]
  - NEONATAL ASPIRATION [None]
